FAERS Safety Report 21171027 (Version 1)
Quarter: 2022Q3

REPORT INFORMATION
  Report Type: Spontaneous
  Country: US (occurrence: US)
  Receive Date: 20220804
  Receipt Date: 20220804
  Transmission Date: 20221026
  Serious: Yes (Other)
  Sender: FDA-Public Use
  Company Number: US-STRIDES ARCOLAB LIMITED-2022SP006679

PATIENT
  Age: 17 Year
  Sex: Male

DRUGS (7)
  1. HALOPERIDOL [Suspect]
     Active Substance: HALOPERIDOL
     Indication: Catatonia
     Dosage: 5 MILLIGRAM, UNKNOWN
     Route: 065
  2. METHYLPHENIDATE [Suspect]
     Active Substance: METHYLPHENIDATE
     Indication: Catatonia
     Dosage: 30 MILLIGRAM AT MORNING (30MG AT MORNING AND 20MG AT AFTERNOON)
     Route: 065
  3. METHYLPHENIDATE [Suspect]
     Active Substance: METHYLPHENIDATE
     Dosage: 20 MILLIGRAM AT AFTERNOON (30MG AT MORNING AND 20MG AT AFTERNOON)
     Route: 065
  4. KETAMINE [Suspect]
     Active Substance: KETAMINE
     Indication: Catatonia
     Dosage: 500 MILLIGRAM, UNKNOWN
     Route: 042
  5. LORAZEPAM [Concomitant]
     Active Substance: LORAZEPAM
     Indication: Catatonia
     Dosage: 4 MILLIGRAM, UNKNOWN
     Route: 065
  6. LORAZEPAM [Concomitant]
     Active Substance: LORAZEPAM
     Dosage: UNK (DOSE TITRATING TO 6MG FOUR TIME A DAY)
     Route: 048
  7. CLONIDINE [Concomitant]
     Active Substance: CLONIDINE
     Indication: Catatonia
     Dosage: 0.2 MILLIGRAM, AT BED TIME (EVERY NIGHT AT BEDTIME)
     Route: 065

REACTIONS (2)
  - Drug ineffective [Unknown]
  - Off label use [Unknown]
